FAERS Safety Report 7345754-X (Version None)
Quarter: 2011Q1

REPORT INFORMATION
  Report Type: 
  Country: None (occurrence: None)
  Receive Date: 20110308
  Receipt Date: 20110308
  Transmission Date: 20110831
  Serious: Yes (Hospitalization)
  Sender: FDA-Public Use
  Company Number: None

PATIENT
  Age: 11 Year
  Sex: Male
  Weight: 44 kg

DRUGS (1)
  1. RISPERIDONE [Suspect]
     Indication: ABNORMAL BEHAVIOUR
     Dosage: 0.25 MG TID PO
     Route: 048
     Dates: start: 20110105, end: 20110105

REACTIONS (6)
  - PYREXIA [None]
  - DYSPNOEA [None]
  - DIABETIC KETOACIDOSIS [None]
  - EAR PAIN [None]
  - OROPHARYNGEAL PAIN [None]
  - ASTHENIA [None]
